FAERS Safety Report 20516687 (Version 1)
Quarter: 2022Q1

REPORT INFORMATION
  Report Type: Spontaneous
  Country: CA (occurrence: CA)
  Receive Date: 20220225
  Receipt Date: 20220225
  Transmission Date: 20220423
  Serious: Yes (Hospitalization)
  Sender: FDA-Public Use
  Company Number: CA-TEVA-2022-CA-2009539

PATIENT
  Age: 3 Year
  Sex: Female
  Weight: 15 kg

DRUGS (23)
  1. CISPLATIN [Suspect]
     Active Substance: CISPLATIN
     Indication: Medulloblastoma
     Route: 042
  2. ETOPOSIDE [Suspect]
     Active Substance: ETOPOSIDE
     Indication: Medulloblastoma
     Route: 065
  3. VINCRISTINE SULFATE [Suspect]
     Active Substance: VINCRISTINE SULFATE
     Indication: Medulloblastoma
     Route: 065
  4. CYCLOPHOSPHAMIDE [Suspect]
     Active Substance: CYCLOPHOSPHAMIDE
     Indication: Medulloblastoma
  5. FOLIC ACID [Suspect]
     Active Substance: FOLIC ACID
     Indication: Medulloblastoma
  6. MESNA [Suspect]
     Active Substance: MESNA
     Indication: Medulloblastoma
     Route: 065
  7. METHOTREXATE [Suspect]
     Active Substance: METHOTREXATE
     Indication: Medulloblastoma
     Route: 065
  8. ACETAMINOPHEN [Concomitant]
     Active Substance: ACETAMINOPHEN
  9. DIMENHYDRINATE [Concomitant]
     Active Substance: DIMENHYDRINATE
  10. DIPHENHYDRAMINE [Concomitant]
     Active Substance: DIPHENHYDRAMINE
  11. EMEND [Concomitant]
     Active Substance: APREPITANT
  12. FAMOTIDINE [Concomitant]
     Active Substance: FAMOTIDINE
  13. GRANISETRON [Concomitant]
     Active Substance: GRANISETRON
  14. KCL SOLUTION A 20% [Concomitant]
  15. POLYETHYLENE GLYCOL 3350 [Concomitant]
     Active Substance: POLYETHYLENE GLYCOL 3350
  16. LORAZEPAM [Concomitant]
     Active Substance: LORAZEPAM
     Route: 065
  17. MELATONIN [Concomitant]
     Active Substance: MELATONIN
  18. MOTILIUM [Concomitant]
     Active Substance: DOMPERIDONE
  19. NABILONE [Concomitant]
     Active Substance: NABILONE
  20. NEUPOGEN [Concomitant]
     Active Substance: FILGRASTIM
  21. NEURONTIN [Concomitant]
     Active Substance: GABAPENTIN
  22. OLANZAPINE [Concomitant]
     Active Substance: OLANZAPINE
  23. PENTAMIDINE ISETHIONATE [Concomitant]
     Active Substance: PENTAMIDINE ISETHIONATE

REACTIONS (1)
  - Febrile neutropenia [Recovered/Resolved]
